FAERS Safety Report 19668527 (Version 1)
Quarter: 2021Q3

REPORT INFORMATION
  Report Type: Spontaneous
  Country: CN (occurrence: CN)
  Receive Date: 20210806
  Receipt Date: 20210806
  Transmission Date: 20211014
  Serious: Yes (Hospitalization, Other)
  Sender: FDA-Public Use
  Company Number: CN-PFIZER INC-202100952037

PATIENT
  Age: 66 Year
  Sex: Male
  Weight: 60 kg

DRUGS (5)
  1. SODIUM AESCINATE [Concomitant]
     Active Substance: SODIUM ESCINATE
     Indication: OEDEMA
     Dosage: 10 MG, DAILY
     Route: 041
  2. RUI YANG [Concomitant]
     Indication: GOUT
     Dosage: 40 MG, 1X/DAY
     Route: 048
     Dates: start: 20210608, end: 20210612
  3. VITAMIN B6 [Concomitant]
     Active Substance: PYRIDOXINE HYDROCHLORIDE
     Indication: SYMPTOMATIC TREATMENT
     Dosage: 0.2 G, DAILY
     Route: 041
  4. MEDROL [Suspect]
     Active Substance: METHYLPREDNISOLONE
     Indication: CHRONIC KIDNEY DISEASE
     Dosage: 20 MG, 1X/DAY
     Route: 048
     Dates: start: 20210203, end: 20210210
  5. VITAMIN C [Concomitant]
     Active Substance: ASCORBIC ACID
     Indication: SYMPTOMATIC TREATMENT
     Dosage: 3 G, DAILY
     Route: 041

REACTIONS (5)
  - Necrosis ischaemic [Not Recovered/Not Resolved]
  - Incision site impaired healing [Not Recovered/Not Resolved]
  - Intentional product misuse [Unknown]
  - Skin flap necrosis [Not Recovered/Not Resolved]
  - Off label use [Unknown]

NARRATIVE: CASE EVENT DATE: 20210608
